FAERS Safety Report 16752617 (Version 3)
Quarter: 2019Q3

REPORT INFORMATION
  Report Type: Report from Study
  Country: ZA (occurrence: ZA)
  Receive Date: 20190828
  Receipt Date: 20190911
  Transmission Date: 20191005
  Serious: Yes (Other)
  Sender: FDA-Public Use
  Company Number: PHHY2019ZA188346

PATIENT
  Sex: Female

DRUGS (2)
  1. COSENTYX [Suspect]
     Active Substance: SECUKINUMAB
     Indication: PSORIATIC ARTHROPATHY
     Dosage: 150 MG, UNK
     Route: 058
     Dates: start: 20190808
  2. ARAVA [Suspect]
     Active Substance: LEFLUNOMIDE
     Indication: PRODUCT USED FOR UNKNOWN INDICATION
     Dosage: UNK
     Route: 065

REACTIONS (10)
  - Decreased immune responsiveness [Recovering/Resolving]
  - Memory impairment [Unknown]
  - Arthritis infective [Unknown]
  - Wound abscess [Unknown]
  - Fatigue [Unknown]
  - Wound sepsis [Not Recovered/Not Resolved]
  - Impaired healing [Unknown]
  - Aspiration [Unknown]
  - Product prescribing error [Unknown]
  - Somnolence [Unknown]
